FAERS Safety Report 14558661 (Version 1)
Quarter: 2018Q1

REPORT INFORMATION
  Report Type: Other
  Country: DE (occurrence: DE)
  Receive Date: 20180221
  Receipt Date: 20180221
  Transmission Date: 20180509
  Serious: Yes (Hospitalization)
  Sender: FDA-Public Use
  Company Number: DE-GLENMARK PHARMACEUTICALS-2018GMK032270

PATIENT

DRUGS (2)
  1. ROSUVASTATIN CALCIUM FILMCOATED TABLET 40MG [Suspect]
     Active Substance: ROSUVASTATIN CALCIUM
     Dosage: 20 MG, UNK
     Route: 048
     Dates: end: 201708
  2. ROSUVASTATIN CALCIUM FILMCOATED TABLET 40MG [Suspect]
     Active Substance: ROSUVASTATIN CALCIUM
     Indication: HYPERCHOLESTEROLAEMIA
     Dosage: 40 MG, UNK
     Route: 048
     Dates: start: 201503

REACTIONS (6)
  - Myopathy [Not Recovered/Not Resolved]
  - Myalgia [Not Recovered/Not Resolved]
  - Muscle spasms [Not Recovered/Not Resolved]
  - Gait inability [Not Recovered/Not Resolved]
  - Wheelchair user [Not Recovered/Not Resolved]
  - Muscular weakness [Not Recovered/Not Resolved]
